FAERS Safety Report 9013697 (Version 8)
Quarter: 2013Q3

REPORT INFORMATION
  Report Type: Report from Study
  Country: BR (occurrence: BR)
  Receive Date: 20130115
  Receipt Date: 20130906
  Transmission Date: 20140515
  Serious: Yes (Hospitalization)
  Sender: FDA-Public Use
  Company Number: PHHY2013BR002845

PATIENT
  Age: 70 Year
  Sex: Female
  Weight: 65 kg

DRUGS (8)
  1. EXJADE [Suspect]
     Indication: MYELODYSPLASTIC SYNDROME
     Dosage: 500 MG, DAILY
     Route: 048
     Dates: start: 2011
  2. EXJADE [Suspect]
     Dosage: 250 MG, DAILY
     Route: 048
     Dates: start: 2011
  3. EXJADE [Suspect]
     Dosage: 1250 MG, DAILY
     Route: 048
  4. EXJADE [Suspect]
     Dosage: 750 MG, DAILY
     Route: 048
     Dates: end: 20130418
  5. EXJADE [Suspect]
     Dosage: 750 MG, DAILY
     Route: 048
     Dates: start: 200911
  6. EXJADE [Suspect]
     Dosage: 250 MG (1 TABLET), DAILY
     Route: 048
  7. ACYCLOVIR [Concomitant]
     Indication: ANTIBIOTIC THERAPY
     Dosage: 2 DF, EACH 12 HOURS
     Dates: start: 20121210, end: 20121217
  8. DECITABINE [Concomitant]
     Indication: BONE MARROW DISORDER
     Dosage: 1 DF, FOR 5 DAYS (WHEN SHE IS UNDERGOING CHEMOTHERAPY)
     Route: 042
     Dates: start: 201210

REACTIONS (9)
  - Asthenia [Unknown]
  - Immunodeficiency [Unknown]
  - Pyrexia [Recovering/Resolving]
  - Pain [Not Recovered/Not Resolved]
  - General physical condition abnormal [Recovering/Resolving]
  - Skin discolouration [Unknown]
  - Aphagia [Recovering/Resolving]
  - Serum ferritin increased [Unknown]
  - Serum ferritin decreased [Unknown]
